FAERS Safety Report 5711321-4 (Version None)
Quarter: 2008Q2

REPORT INFORMATION
  Report Type: 
  Country: None (occurrence: None)
  Receive Date: 20080418
  Receipt Date: 20080410
  Transmission Date: 20081010
  Serious: Yes (Other)
  Sender: FDA-Public Use
  Company Number: 08H-163-0314134-00

PATIENT
  Age: 42 Year
  Sex: Male
  Weight: 178.7172 kg

DRUGS (6)
  1. PANHEPRIN [Suspect]
     Indication: CENTRAL VENOUS CATHETERISATION
     Dosage: 100 MG UNITS/ML, FLUSH, INTRAVENOUS
     Route: 042
     Dates: start: 20080331, end: 20080401
  2. BENADRYL [Concomitant]
  3. ZOFRAN [Concomitant]
  4. 0.9% NACL (SODIUM CHLORIDE) [Concomitant]
  5. VANCOMYCIN [Concomitant]
  6. HEPARIN [Concomitant]

REACTIONS (5)
  - CONVULSION [None]
  - CYANOSIS [None]
  - NAUSEA [None]
  - RESPIRATORY ARREST [None]
  - VOMITING [None]
